FAERS Safety Report 9059929 (Version 1)
Quarter: 2013Q1

REPORT INFORMATION
  Report Type: Spontaneous
  Country: US (occurrence: None)
  Receive Date: 20130118
  Receipt Date: 20130118
  Transmission Date: 20140127
  Serious: Yes (Death)
  Sender: FDA-Public Use
  Company Number: TIR-01704

PATIENT
  Age: 31 Year
  Sex: Female

DRUGS (6)
  1. LEVOTHYROXINE [Suspect]
  2. VERAPAMIL [Suspect]
  3. CARVEDILOL [Suspect]
  4. LISINOPRIL [Suspect]
  5. FUROSEMIDE [Suspect]
  6. COCAINE [Suspect]

REACTIONS (1)
  - Completed suicide [None]
